FAERS Safety Report 13264464 (Version 1)
Quarter: 2017Q1

REPORT INFORMATION
  Report Type: Not Available
  Country: None (occurrence: US)
  Receive Date: 20170223
  Receipt Date: 20170223
  Transmission Date: 20170428
  Serious: No
  Sender: FDA-Public Use
  Company Number: US-AKORN-40422

PATIENT
  Age: 55 Year
  Sex: Female

DRUGS (1)
  1. FLUTICASONE PROPIONATE NASAL SPRAY [Suspect]
     Active Substance: FLUTICASONE PROPIONATE

REACTIONS (3)
  - Drug ineffective [Recovered/Resolved]
  - Nasal inflammation [Recovered/Resolved]
  - Nasal discomfort [Recovered/Resolved]
